FAERS Safety Report 11002081 (Version 3)
Quarter: 2015Q2

REPORT INFORMATION
  Report Type: Report from Study
  Country: TW (occurrence: TW)
  Receive Date: 20150408
  Receipt Date: 20150611
  Transmission Date: 20150821
  Serious: Yes (Death, Life-Threatening, Hospitalization)
  Sender: FDA-Public Use
  Company Number: TW-ABBVIE-15K-153-1372838-00

PATIENT
  Age: 74 Year
  Sex: Female

DRUGS (7)
  1. NORVASC [Concomitant]
     Active Substance: AMLODIPINE BESYLATE
     Indication: HYPERTENSION
     Route: 048
     Dates: start: 20131129, end: 20150407
  2. FLUR DI FEN [Concomitant]
     Indication: RHEUMATOID ARTHRITIS
     Dosage: 1 IN 1 DAY
     Route: 062
     Dates: start: 20131129, end: 20150407
  3. HUMIRA [Suspect]
     Active Substance: ADALIMUMAB
     Indication: RHEUMATOID ARTHRITIS
     Route: 058
     Dates: start: 20140705, end: 20150407
  4. DEFENSE [Concomitant]
     Indication: PRODUCT USED FOR UNKNOWN INDICATION
     Route: 048
     Dates: start: 20140606, end: 20150407
  5. ARAVA [Concomitant]
     Active Substance: LEFLUNOMIDE
     Indication: RHEUMATOID ARTHRITIS
     Route: 048
     Dates: start: 20140418, end: 20150407
  6. METHOTREXATE [Concomitant]
     Active Substance: METHOTREXATE
     Indication: RHEUMATOID ARTHRITIS
     Route: 048
     Dates: start: 20131129, end: 20150407
  7. PREDNISOLONE. [Concomitant]
     Active Substance: PREDNISOLONE
     Indication: RHEUMATOID ARTHRITIS
     Route: 048
     Dates: start: 20131129, end: 20150407

REACTIONS (5)
  - Blood pressure decreased [Fatal]
  - Cerebral calcification [Unknown]
  - Cerebral haemorrhage [Fatal]
  - Listeriosis [Fatal]
  - Intracranial aneurysm [Unknown]

NARRATIVE: CASE EVENT DATE: 2015
